FAERS Safety Report 9464591 (Version 2)
Quarter: 2013Q3

REPORT INFORMATION
  Report Type: Spontaneous
  Country: GB (occurrence: GB)
  Receive Date: 20130819
  Receipt Date: 20130830
  Transmission Date: 20140515
  Serious: Yes (Hospitalization, Other)
  Sender: FDA-Public Use
  Company Number: GB-PFIZER INC-2013233936

PATIENT
  Age: 49 Year
  Sex: Male

DRUGS (9)
  1. METFORMIN HCL [Suspect]
     Dosage: 10500 MG, SINGLE
     Dates: start: 20130707, end: 20130707
  2. OMEPRAZOLE [Suspect]
     Dosage: 140 MG, SINGLE
     Dates: start: 20130707, end: 20130707
  3. ATORVASTATIN [Suspect]
     Dosage: 210 MG, SINGLE
     Dates: start: 20130707, end: 20130707
  4. CITALOPRAM [Suspect]
     Dosage: 280 MG, SINGLE
     Dates: start: 20130707, end: 20130707
  5. ZAPONEX [Suspect]
     Dosage: 4.9 G, UNK
     Route: 048
     Dates: start: 20110802, end: 201308
  6. ZAPONEX [Suspect]
     Dosage: UNK
     Route: 048
     Dates: start: 20130707, end: 20130707
  7. AMISULPRIDE [Suspect]
     Dosage: 3150 MG, SINGLE
     Dates: start: 20130707, end: 20130707
  8. ACETYLSALICYLIC ACID [Suspect]
     Dosage: 525 MG, SINGLE
     Dates: start: 20130707, end: 20130707
  9. ACAMPROSATE [Suspect]
     Dosage: 13860 MG, SINGLE
     Dates: start: 20130707, end: 20130707

REACTIONS (3)
  - Overdose [Recovered/Resolved with Sequelae]
  - Cardiovascular disorder [Unknown]
  - Hypoventilation [Recovering/Resolving]
